FAERS Safety Report 23432889 (Version 2)
Quarter: 2024Q1

REPORT INFORMATION
  Report Type: Spontaneous
  Country: US (occurrence: US)
  Receive Date: 20240123
  Receipt Date: 20240319
  Transmission Date: 20240409
  Serious: Yes (Other)
  Sender: FDA-Public Use
  Company Number: US-OTSUKA-2024_001259

PATIENT
  Sex: Female
  Weight: 57.61 kg

DRUGS (3)
  1. REXULTI [Suspect]
     Active Substance: BREXPIPRAZOLE
     Indication: Dementia Alzheimer^s type
     Dosage: 2 MG
     Route: 065
     Dates: start: 202307, end: 202311
  2. REXULTI [Suspect]
     Active Substance: BREXPIPRAZOLE
     Indication: Agitation
  3. NUEDEXTA [Suspect]
     Active Substance: DEXTROMETHORPHAN HYDROBROMIDE\QUINIDINE SULFATE
     Indication: Affect lability
     Dosage: 1 DF (20-10 MG), BID (ONE IN THE EVENING AND ONE IN THE MORNING)
     Route: 065
     Dates: start: 20231129

REACTIONS (9)
  - Suicidal ideation [Unknown]
  - Anal incontinence [Unknown]
  - Condition aggravated [Unknown]
  - Crying [Unknown]
  - Weight decreased [Unknown]
  - Drug ineffective [Unknown]
  - Inability to afford medication [Unknown]
  - Insurance issue [Unknown]
  - Product use complaint [Unknown]
